FAERS Safety Report 17943853 (Version 2)
Quarter: 2020Q3

REPORT INFORMATION
  Report Type: Spontaneous
  Country: US (occurrence: US)
  Receive Date: 20200625
  Receipt Date: 20200709
  Transmission Date: 20201103
  Serious: Yes (Other)
  Sender: FDA-Public Use
  Company Number: US-COVIS PHARMA B.V.-2020COV00260

PATIENT
  Age: 69 Year
  Sex: Female
  Weight: 48.98 kg

DRUGS (12)
  1. UNSPECIFIED CHOLESTEROL MEDICATION [Concomitant]
     Active Substance: UNSPECIFIED INGREDIENT
     Dosage: HALF A PILL, EVERY OTHER DAY
     Dates: start: 2019
  2. HYOSCYAMINE. [Concomitant]
     Active Substance: HYOSCYAMINE
     Indication: ABDOMINAL DISCOMFORT
     Dosage: UNK
     Route: 048
     Dates: start: 2010
  3. PROMETHAZINE HYDROCHLORIDE (PHENERGAN) [Concomitant]
     Indication: MIGRAINE
     Dosage: UNK, ABOUT 2X/YEAR
     Route: 048
  4. TIZANIDINE. [Concomitant]
     Active Substance: TIZANIDINE
     Indication: DIURETIC THERAPY
     Dosage: 4 MG, 1X/DAY
     Route: 048
  5. UNSPECIFIED CHOLESTEROL MEDICATION [Concomitant]
     Active Substance: UNSPECIFIED INGREDIENT
     Dosage: HALF A PILL, 1X/DAY
     Dates: start: 201909
  6. PULMICORT FLEXHALER [Suspect]
     Active Substance: BUDESONIDE
     Indication: ASTHMA
     Dosage: 180 ?G, 2X/DAY
     Route: 055
     Dates: start: 20200402
  7. ROSUVASTATIN. [Suspect]
     Active Substance: ROSUVASTATIN
     Indication: BLOOD CHOLESTEROL INCREASED
     Dosage: 20 MG, 1X/DAY
     Route: 048
     Dates: start: 2005
  8. ARIMIDEX [Suspect]
     Active Substance: ANASTROZOLE
     Indication: BREAST CANCER FEMALE
     Dosage: 1 MG, 1X/DAY
     Route: 048
     Dates: start: 201510
  9. PULMICORT FLEXHALER [Suspect]
     Active Substance: BUDESONIDE
     Dosage: 90 ?G, 1X/DAY OR SKIPPING ALTOGETHER
     Route: 055
     Dates: start: 202004
  10. SUMATRIPTAN. [Concomitant]
     Active Substance: SUMATRIPTAN
     Indication: MIGRAINE
     Dosage: 50 MG, AS NEEDED
     Route: 048
  11. OMEPRAZOLE MAGNESIUM. [Suspect]
     Active Substance: OMEPRAZOLE MAGNESIUM
     Indication: GASTRIC DISORDER
     Dosage: UNK
     Route: 048
     Dates: start: 2010
  12. CELEXA [Concomitant]
     Active Substance: CITALOPRAM HYDROBROMIDE
     Indication: ANXIETY
     Dosage: 10 MG, 1X/DAY AT BEDTIME
     Route: 048
     Dates: start: 2008

REACTIONS (7)
  - Migraine [Unknown]
  - Insomnia [Recovered/Resolved]
  - Breast cancer female [Unknown]
  - Asthma [Unknown]
  - Blood cholesterol increased [Unknown]
  - Vomiting [Unknown]
  - Arthropathy [Not Recovered/Not Resolved]

NARRATIVE: CASE EVENT DATE: 201509
